FAERS Safety Report 23347391 (Version 5)
Quarter: 2024Q1

REPORT INFORMATION
  Report Type: Spontaneous
  Country: US (occurrence: US)
  Receive Date: 20231228
  Receipt Date: 20240312
  Transmission Date: 20240409
  Serious: No
  Sender: FDA-Public Use
  Company Number: US-PFIZER INC-PV202300207547

PATIENT
  Age: 85 Year
  Sex: Female

DRUGS (1)
  1. IBRANCE [Suspect]
     Active Substance: PALBOCICLIB
     Dosage: 125 MG

REACTIONS (11)
  - Eating disorder [Unknown]
  - Decreased activity [Unknown]
  - Back pain [Unknown]
  - Fatigue [Not Recovered/Not Resolved]
  - Haemoglobin abnormal [Unknown]
  - White blood cell count abnormal [Unknown]
  - Alopecia [Unknown]
  - Decreased appetite [Unknown]
  - Rash macular [Not Recovered/Not Resolved]
  - Wound [Unknown]
  - Impaired healing [Unknown]
